FAERS Safety Report 7331543-9 (Version None)
Quarter: 2011Q1

REPORT INFORMATION
  Report Type: 
  Country: None (occurrence: None)
  Receive Date: 20110304
  Receipt Date: 20110214
  Transmission Date: 20110831
  Serious: Yes (Hospitalization, Other)
  Sender: FDA-Public Use
  Company Number: US-PFIZER INC-2011024817

PATIENT
  Sex: Female

DRUGS (5)
  1. PRENATAL VITAMINS [Concomitant]
  2. NORVASC [Suspect]
     Dosage: UNK
     Dates: end: 20100101
  3. ENBREL [Suspect]
     Indication: PSORIASIS
     Dosage: 25 MG, 2X/WEEK
     Route: 058
     Dates: end: 20101101
  4. CELLCEPT [Suspect]
     Dosage: UNK
     Dates: end: 20100101
  5. METHYLDOPA [Suspect]
     Indication: HYPERTENSION
     Dosage: 250 MG, 3X/DAY
     Route: 048
     Dates: start: 20100101

REACTIONS (5)
  - PSORIASIS [None]
  - FAILED INDUCTION OF LABOUR [None]
  - GESTATIONAL DIABETES [None]
  - SUPPRESSED LACTATION [None]
  - INCISION SITE HAEMATOMA [None]
